FAERS Safety Report 19363566 (Version 1)
Quarter: 2021Q2

REPORT INFORMATION
  Report Type: Spontaneous
  Country: US (occurrence: US)
  Receive Date: 20210602
  Receipt Date: 20210602
  Transmission Date: 20210717
  Serious: No
  Sender: FDA-Public Use
  Company Number: US-BRECKENRIDGE PHARMACEUTICAL, INC.-2112241

PATIENT
  Sex: Female

DRUGS (1)
  1. ASENAPINE SUBLINGUAL 10MG TABLETS [Suspect]
     Active Substance: ASENAPINE
     Route: 060

REACTIONS (4)
  - Erythema [None]
  - Burning sensation [None]
  - Swelling [None]
  - Product substitution issue [None]
